FAERS Safety Report 4358823-3 (Version None)
Quarter: 2004Q2

REPORT INFORMATION
  Report Type: 
  Country: None (occurrence: None)
  Receive Date: 20040511
  Receipt Date: 20040427
  Transmission Date: 20050107
  Serious: Yes (Hospitalization)
  Sender: FDA-Public Use
  Company Number: 200412075BCC

PATIENT
  Age: 58 Year
  Sex: Male
  Weight: 74 kg

DRUGS (10)
  1. BAYER            (ACETYLSALICYLIC ACID) [Suspect]
     Indication: ANTIPLATELET THERAPY
     Dosage: 325 MG, NI, ORAL
     Route: 048
     Dates: start: 20040113
  2. PLAVIX [Suspect]
     Indication: ANTIPLATELET THERAPY
     Dosage: 300 MG, ORAL
     Route: 048
     Dates: start: 20040113
  3. ANGIOMAX (BIVALIRUDIN) OR LOVENOX/ CLEXANE (ENXAPARIN   (UNCODEABLE ^I [Suspect]
     Dosage: ONCE, INTRAVENOUS BOLUS SEE IMAGE
     Route: 040
     Dates: start: 20040113, end: 20040114
  4. ANGIOMAX (BIVALIRUDIN) OR LOVENOX/ CLEXANE (ENXAPARIN   (UNCODEABLE ^I [Suspect]
     Dosage: ONCE, INTRAVENOUS BOLUS SEE IMAGE
     Route: 040
     Dates: start: 20040113
  5. LOPRESSOR [Concomitant]
  6. HYDROCHLOROTHIAZIDE [Concomitant]
  7. NEXIUM [Concomitant]
  8. NIACIN [Concomitant]
  9. SENOKOT [Concomitant]
  10. HEPARIN [Concomitant]

REACTIONS (10)
  - ACUTE RESPIRATORY DISTRESS SYNDROME [None]
  - ATELECTASIS [None]
  - BREATH SOUNDS DECREASED [None]
  - COAGULOPATHY [None]
  - CORONARY ARTERY SURGERY [None]
  - EFFUSION [None]
  - HAEMORRHAGE [None]
  - OEDEMA [None]
  - RHONCHI [None]
  - TRIPLE VESSEL BYPASS GRAFT [None]
